FAERS Safety Report 24444105 (Version 3)
Quarter: 2024Q4

REPORT INFORMATION
  Report Type: Spontaneous
  Country: KR (occurrence: KR)
  Receive Date: 20241016
  Receipt Date: 20241112
  Transmission Date: 20250115
  Serious: Yes (Hospitalization, Other)
  Sender: ACCORD
  Company Number: KR-Accord-450571

PATIENT
  Age: 75 Year
  Sex: Female
  Weight: 45.4 kg

DRUGS (42)
  1. FLUOROURACIL [Suspect]
     Active Substance: FLUOROURACIL
     Indication: Squamous cell carcinoma of head and neck
     Dosage: QD
     Route: 042
     Dates: start: 20240529, end: 20240601
  2. CARBOPLATIN [Suspect]
     Active Substance: CARBOPLATIN
     Indication: Squamous cell carcinoma of head and neck
     Dosage: 5 AUC, 1Q3W
     Route: 042
     Dates: start: 20240529, end: 20240911
  3. PEMBROLIZUMAB [Suspect]
     Active Substance: PEMBROLIZUMAB
     Indication: Squamous cell carcinoma of head and neck
     Dosage: 1Q3W
     Route: 042
     Dates: start: 20240529, end: 20240911
  4. DEXAMETHASONE [Concomitant]
     Active Substance: DEXAMETHASONE
     Dates: start: 20240529, end: 20240911
  5. NETUPITANT [Concomitant]
     Active Substance: NETUPITANT
     Dates: start: 20240529, end: 20240911
  6. CODEINE PHOSPHATE [Concomitant]
     Active Substance: CODEINE PHOSPHATE
     Dates: start: 20240411, end: 20241001
  7. PROTEIN [Concomitant]
     Active Substance: PROTEIN
     Dates: start: 20240411
  8. AMLODIPINE [Concomitant]
     Active Substance: AMLODIPINE BESYLATE
     Dates: start: 2011
  9. BENZYDAMINE [Concomitant]
     Active Substance: BENZYDAMINE
     Dates: start: 20240622
  10. TIROPRAMIDE HYDROCHLORIDE [Concomitant]
     Active Substance: TIROPRAMIDE HYDROCHLORIDE
     Dates: start: 201109
  11. ITOPRIDE [Concomitant]
     Active Substance: ITOPRIDE
     Dates: start: 201109
  12. OTILONIUM BROMIDE [Concomitant]
     Active Substance: OTILONIUM BROMIDE
     Dates: start: 201109
  13. ALVERINE [Concomitant]
     Active Substance: ALVERINE
     Dates: start: 201109
  14. LOPERAMIDE [Concomitant]
     Active Substance: LOPERAMIDE
     Dates: start: 20240501
  15. MORPHINE SULFATE [Concomitant]
     Active Substance: MORPHINE SULFATE
     Dates: start: 20240911
  16. OXYCODONE HYDROCHLORIDE [Concomitant]
     Active Substance: OXYCODONE HYDROCHLORIDE
     Dates: start: 20240803
  17. ASCORBIC ACID [Concomitant]
     Active Substance: ASCORBIC ACID
     Dates: start: 20240803
  18. FENTANYL [Concomitant]
     Active Substance: FENTANYL
     Dates: start: 20240822
  19. Alanine, Arginine, Aspartic Acid, Glutamic Acid, G [Concomitant]
     Dates: start: 20240926, end: 20240926
  20. ESCITALOPRAM OXALATE [Concomitant]
     Active Substance: ESCITALOPRAM OXALATE
     Dates: start: 201109
  21. GALANTAMINE [Concomitant]
     Active Substance: GALANTAMINE
     Dates: start: 201109
  22. GLYCINE MAX SEED OIL [Concomitant]
     Dates: start: 20240827, end: 20241002
  23. LACTULOSE [Concomitant]
     Active Substance: LACTULOSE
     Dates: start: 20240928, end: 20240928
  24. CHLORHEXIDINE GLUCONATE [Concomitant]
     Active Substance: CHLORHEXIDINE GLUCONATE
     Dates: start: 20241005
  25. DICLOFENAC [Concomitant]
     Active Substance: DICLOFENAC
     Dates: start: 20241005
  26. ACETYLCYSTEINE [Concomitant]
     Active Substance: ACETYLCYSTEINE
     Dates: start: 20241011, end: 20241022
  27. HALOPERIDOL [Concomitant]
     Active Substance: HALOPERIDOL
     Dates: start: 20241010, end: 20241022
  28. ALBUTEROL [Concomitant]
     Active Substance: ALBUTEROL
     Dates: start: 20241011, end: 20241022
  29. NALOXONE [Concomitant]
     Active Substance: NALOXONE
     Dates: start: 20241003, end: 20241003
  30. PHENYLALANINE [Concomitant]
     Active Substance: PHENYLALANINE
     Dates: start: 20241003, end: 20241022
  31. ALPHAMIN [Concomitant]
     Dates: start: 20240928, end: 20241002
  32. AMBROXOL [Concomitant]
     Active Substance: AMBROXOL
     Dates: start: 20241011, end: 20241022
  33. METOCLOPRAMIDE [Concomitant]
     Active Substance: METOCLOPRAMIDE
     Dates: start: 20241014, end: 20241022
  34. FUROSEMIDE [Concomitant]
     Active Substance: FUROSEMIDE
     Dates: start: 20241004, end: 20241022
  35. REBAMIPIDE [Concomitant]
     Active Substance: REBAMIPIDE
     Dates: start: 20240825
  36. NICARDIPINE [Concomitant]
     Active Substance: NICARDIPINE
     Dates: start: 20241003, end: 20241003
  37. ZOLEDRONIC ACID [Concomitant]
     Active Substance: ZOLEDRONIC ACID
     Dates: start: 20241004, end: 20241004
  38. FLUOROURACIL [Suspect]
     Active Substance: FLUOROURACIL
     Indication: Squamous cell carcinoma of head and neck
     Dosage: QD
     Route: 042
     Dates: start: 20240619, end: 20240622
  39. FLUOROURACIL [Suspect]
     Active Substance: FLUOROURACIL
     Indication: Squamous cell carcinoma of head and neck
     Dosage: QD
     Route: 042
     Dates: start: 20240710, end: 20240713
  40. FLUOROURACIL [Suspect]
     Active Substance: FLUOROURACIL
     Indication: Squamous cell carcinoma of head and neck
     Dosage: QD
     Route: 042
     Dates: start: 20240731, end: 20240803
  41. FLUOROURACIL [Suspect]
     Active Substance: FLUOROURACIL
     Indication: Squamous cell carcinoma of head and neck
     Dosage: QD
     Route: 042
     Dates: start: 20240821, end: 20240824
  42. FLUOROURACIL [Suspect]
     Active Substance: FLUOROURACIL
     Indication: Squamous cell carcinoma of head and neck
     Dosage: QD
     Route: 042
     Dates: start: 20240911, end: 20240914

REACTIONS (4)
  - Neutrophil count decreased [Recovered/Resolved]
  - Platelet count decreased [Recovered/Resolved]
  - Hypokalaemia [Recovered/Resolved]
  - Anaemia [Recovered/Resolved]

NARRATIVE: CASE EVENT DATE: 20240925
